FAERS Safety Report 8309820-4 (Version None)
Quarter: 2012Q2

REPORT INFORMATION
  Report Type: 
  Country: None (occurrence: None)
  Receive Date: 20120423
  Receipt Date: 20120420
  Transmission Date: 20120825
  Serious: Yes (Hospitalization, Other)
  Sender: FDA-Public Use
  Company Number: AUR-APL-2012-00984

PATIENT
  Age: 26 Year
  Sex: Female
  Weight: 70 kg

DRUGS (2)
  1. GABAPENTIN [Suspect]
     Indication: DIABETIC NEUROPATHY
     Dosage: 2700 MG (900 MG, 3 IN 1 D), ORAL
     Route: 048
     Dates: end: 20110311
  2. MORPHINE SULFATE [Concomitant]

REACTIONS (9)
  - DIABETIC KETOACIDOSIS [None]
  - CAESAREAN SECTION [None]
  - PREGNANCY [None]
  - PYREXIA [None]
  - CONGENITAL ANOMALY [None]
  - HAEMANGIOMA OF SKIN [None]
  - MATERNAL DRUGS AFFECTING FOETUS [None]
  - SOMNOLENCE [None]
  - MATERNAL EXPOSURE DURING PREGNANCY [None]
